FAERS Safety Report 5524563-8 (Version None)
Quarter: 2007Q4

REPORT INFORMATION
  Report Type: 
  Country: None (occurrence: None)
  Receive Date: 20071123
  Receipt Date: 20071112
  Transmission Date: 20080405
  Serious: Yes (Other)
  Sender: FDA-Public Use
  Company Number: GB-JNJFOC-20071103678

PATIENT
  Age: 73 Year
  Sex: Female

DRUGS (12)
  1. LEVOFLOXACIN [Suspect]
     Indication: CHRONIC OBSTRUCTIVE PULMONARY DISEASE
     Route: 048
  2. CETIRIZINE HCL [Concomitant]
     Route: 065
  3. CLOMIPRAMINE HCL [Concomitant]
     Route: 065
  4. NASONEX [Concomitant]
     Indication: RHINITIS
     Route: 065
  5. NASONEX [Concomitant]
     Indication: SEASONAL ALLERGY
     Route: 065
  6. PREDNISOLONE [Concomitant]
     Route: 065
  7. SERETIDE [Concomitant]
     Route: 055
  8. SPIRIVA [Concomitant]
     Indication: CHRONIC OBSTRUCTIVE PULMONARY DISEASE
     Route: 055
  9. UNKNOWN DRUG [Concomitant]
     Indication: HYPERSENSITIVITY
     Route: 048
  10. UNKNOWN DRUG [Concomitant]
     Indication: CHRONIC OBSTRUCTIVE PULMONARY DISEASE
     Route: 048
  11. AMOXICILLIN + CLAVULANATE POTASSIUM [Concomitant]
     Indication: CHRONIC OBSTRUCTIVE PULMONARY DISEASE
     Route: 048
  12. UNKNOWN DRUG [Concomitant]
     Indication: DEPRESSION
     Route: 048

REACTIONS (2)
  - PAIN IN EXTREMITY [None]
  - TENDONITIS [None]
